FAERS Safety Report 11841004 (Version 3)
Quarter: 2015Q4

REPORT INFORMATION
  Report Type: Report from Study
  Country: UG (occurrence: UG)
  Receive Date: 20151216
  Receipt Date: 20151231
  Transmission Date: 20160305
  Serious: Yes (Hospitalization, Other)
  Sender: FDA-Public Use
  Company Number: UG-GILEAD-2015-0132067

PATIENT
  Age: 36 Year
  Sex: Male
  Weight: 56 kg

DRUGS (3)
  1. SULFAMETHOXAZOLE AND TRIMETHOPRIM [Concomitant]
     Active Substance: SULFAMETHOXAZOLE\TRIMETHOPRIM
     Dosage: UNK
     Dates: start: 20140106, end: 20150103
  2. EFAVIRENZ/EMTRICITABINE/TENOFOVIR DISOPROXIL FUMARATE [Suspect]
     Active Substance: EFAVIRENZ\EMTRICITABINE\TENOFOVIR DISOPROXIL FUMARATE
     Indication: KAPOSI^S SARCOMA AIDS RELATED
     Dosage: 1100 MG, QD
     Route: 048
     Dates: start: 20140319, end: 20150103
  3. PACLITAXEL. [Suspect]
     Active Substance: PACLITAXEL
     Indication: KAPOSI^S SARCOMA AIDS RELATED
     Route: 065

REACTIONS (3)
  - Pneumonia [Recovered/Resolved]
  - Pyrexia [Unknown]
  - Hypotension [Unknown]

NARRATIVE: CASE EVENT DATE: 20150104
